FAERS Safety Report 5356306-5 (Version None)
Quarter: 2007Q2

REPORT INFORMATION
  Report Type: 
  Country: None (occurrence: None)
  Receive Date: 20070613
  Receipt Date: 20070604
  Transmission Date: 20071010
  Serious: Yes (Other)
  Sender: FDA-Public Use
  Company Number: BR-PFIZER INC-2007044967

PATIENT
  Sex: Female

DRUGS (1)
  1. FELDENE [Suspect]
     Indication: BREAST PAIN
     Dates: start: 20060101, end: 20060101

REACTIONS (1)
  - ABORTION SPONTANEOUS [None]
